FAERS Safety Report 25899628 (Version 2)
Quarter: 2025Q4

REPORT INFORMATION
  Report Type: Spontaneous
  Country: US (occurrence: US)
  Receive Date: 20251009
  Receipt Date: 20251013
  Transmission Date: 20260118
  Serious: Yes (Other)
  Sender: DR REDDYS
  Company Number: None

PATIENT
  Age: 29 Year
  Sex: Male
  Weight: 83.6 kg

DRUGS (4)
  1. PROPOFOL [Suspect]
     Active Substance: PROPOFOL
     Indication: Sedation
     Dosage: INITIATED AT 10 ?G/KG/MIN AND TITRATED TO 25-35 ?G/KG/MIN
  2. KETAMINE [Concomitant]
     Active Substance: KETAMINE
     Indication: Sedation
  3. ROCURONIUM [Concomitant]
     Active Substance: ROCURONIUM BROMIDE
     Indication: Sedation
  4. FENTANYL [Concomitant]
     Active Substance: FENTANYL
     Indication: Product used for unknown indication
     Dosage: 25-75 ?G/H

REACTIONS (1)
  - Chromaturia [Recovered/Resolved]
